FAERS Safety Report 9425465 (Version 2)
Quarter: 2014Q1

REPORT INFORMATION
  Report Type: Spontaneous
  Country: US (occurrence: US)
  Receive Date: 20130729
  Receipt Date: 20140207
  Transmission Date: 20141002
  Serious: Yes (Disabling, Other)
  Sender: FDA-Public Use
  Company Number: US-BAYER-2013-088396

PATIENT
  Age: 22 Year
  Sex: Female

DRUGS (1)
  1. MIRENA [Suspect]
     Dosage: 20 MCG/24HR, CONT
     Route: 015
     Dates: start: 20120818

REACTIONS (11)
  - Uterine perforation [None]
  - Post procedural haemorrhage [None]
  - Abdominal pain lower [None]
  - Pelvic pain [None]
  - Injury [None]
  - Device difficult to use [None]
  - Device expulsion [None]
  - Emotional distress [None]
  - Anxiety [None]
  - General physical health deterioration [None]
  - Anhedonia [None]
